FAERS Safety Report 6497674-0 (Version None)
Quarter: 2009Q4

REPORT INFORMATION
  Report Type: 
  Country: None (occurrence: None)
  Receive Date: 20091215
  Receipt Date: 20091210
  Transmission Date: 20100525
  Serious: Yes (Death, Hospitalization)
  Sender: FDA-Public Use
  Company Number: DE-ROCHE-674033

PATIENT
  Sex: Male
  Weight: 76 kg

DRUGS (4)
  1. CAPECITABINE [Suspect]
     Dosage: FREQUENCY: 2-0-1, THERAPY PERMANENTLY DISCONTINUED
     Route: 048
     Dates: start: 20080811, end: 20080924
  2. ERLOTINIB [Suspect]
     Dosage: FREQUENCY: 1-0-0, THERAPY PERMANENTLY DISCONTINUED
     Route: 048
     Dates: start: 20080811, end: 20080924
  3. ASPIRIN [Concomitant]
     Dosage: TDD: 1-0-0
     Dates: start: 20080910
  4. SIMVASTIN [Concomitant]
     Dosage: TDD-0-0-1, DRUG: SIMVASTATIN 20 MG
     Dates: start: 20080910

REACTIONS (7)
  - C-REACTIVE PROTEIN INCREASED [None]
  - CEREBRAL ISCHAEMIA [None]
  - DISEASE PROGRESSION [None]
  - INFECTION [None]
  - MALIGNANT NEOPLASM PROGRESSION [None]
  - PANCREATIC CARCINOMA [None]
  - PLATELET COUNT DECREASED [None]
